FAERS Safety Report 11110054 (Version 2)
Quarter: 2015Q2

REPORT INFORMATION
  Report Type: Spontaneous
  Country: US (occurrence: US)
  Receive Date: 20150513
  Receipt Date: 20150519
  Transmission Date: 20150821
  Serious: No
  Sender: FDA-Public Use
  Company Number: US-PFIZER INC-2015157271

PATIENT
  Sex: Female

DRUGS (1)
  1. DUAVEE [Suspect]
     Active Substance: BAZEDOXIFENE ACETATE\ESTROGENS, CONJUGATED
     Dosage: UNK

REACTIONS (2)
  - Hot flush [Unknown]
  - Off label use [Unknown]
